FAERS Safety Report 7032965-6 (Version None)
Quarter: 2010Q4

REPORT INFORMATION
  Report Type: 
  Country: None (occurrence: None)
  Receive Date: 20101004
  Receipt Date: 20100923
  Transmission Date: 20110411
  Serious: Yes (Other)
  Sender: FDA-Public Use
  Company Number: 2008US003440

PATIENT
  Age: 19 Year
  Sex: Female

DRUGS (3)
  1. PROGRAF [Suspect]
     Indication: LUPUS NEPHRITIS
     Dosage: 8 MG,
  2. MYCOPHENOLATE MOFETIL [Suspect]
     Indication: LUPUS NEPHRITIS
     Dosage: 2000 MG,
  3. PREDNISONE TAB [Suspect]
     Indication: LUPUS NEPHRITIS
     Dosage: 25 MG,

REACTIONS (3)
  - ARTHRITIS BACTERIAL [None]
  - BLOOD CHOLESTEROL INCREASED [None]
  - DIABETIC KETOACIDOSIS [None]
